FAERS Safety Report 24050220 (Version 2)
Quarter: 2024Q3

REPORT INFORMATION
  Report Type: Spontaneous
  Country: US (occurrence: US)
  Receive Date: 20240704
  Receipt Date: 20240708
  Transmission Date: 20241016
  Serious: Yes (Life-Threatening, Hospitalization, Other)
  Sender: SANDOZ
  Company Number: US-SANDOZ-SDZ2024US062249

PATIENT
  Age: 18 Year
  Sex: Female

DRUGS (1)
  1. BUPROPION [Suspect]
     Active Substance: BUPROPION
     Indication: Product used for unknown indication
     Dosage: 28 G
     Route: 065

REACTIONS (5)
  - Circulatory collapse [Unknown]
  - Status epilepticus [Unknown]
  - Ventricular arrhythmia [Unknown]
  - Intentional overdose [Unknown]
  - Toxicity to various agents [Unknown]
